FAERS Safety Report 13446713 (Version 1)
Quarter: 2017Q2

REPORT INFORMATION
  Report Type: Spontaneous
  Country: SI (occurrence: SI)
  Receive Date: 20170417
  Receipt Date: 20170417
  Transmission Date: 20170830
  Serious: Yes (Hospitalization)
  Sender: FDA-Public Use
  Company Number: SI-B.I. PHARMACEUTICALS,INC./RIDGEFIELD-2017-50-000002

PATIENT
  Age: 76 Year
  Sex: Female

DRUGS (7)
  1. ATORIS [Concomitant]
     Active Substance: ATORVASTATIN CALCIUM
     Indication: PRODUCT USED FOR UNKNOWN INDICATION
     Dosage: IN THE EVENINGS
     Route: 048
  2. HELEX [Concomitant]
     Active Substance: ALPRAZOLAM
     Indication: PRODUCT USED FOR UNKNOWN INDICATION
     Dosage: IN THE EVENINGS
     Route: 048
  3. PRADAXA [Suspect]
     Active Substance: DABIGATRAN ETEXILATE MESYLATE
     Indication: PULMONARY EMBOLISM
     Dosage: 2X1/DAY
     Route: 048
     Dates: start: 20170227, end: 20170311
  4. COAXIL [Concomitant]
     Active Substance: TIANEPTINE SODIUM
     Indication: PRODUCT USED FOR UNKNOWN INDICATION
     Dosage: 2X12.5MG/DAY
     Route: 048
  5. NOLPAZA [Concomitant]
     Active Substance: PANTOPRAZOLE SODIUM
     Indication: PRODUCT USED FOR UNKNOWN INDICATION
     Dosage: IN THE MORNINGS
     Route: 048
  6. PRENESSA [Concomitant]
     Active Substance: PERINDOPRIL
     Indication: PRODUCT USED FOR UNKNOWN INDICATION
     Dosage: 2X2MG/DAY
     Route: 048
  7. CONCOR COR [Concomitant]
     Active Substance: BISOPROLOL FUMARATE
     Indication: PRODUCT USED FOR UNKNOWN INDICATION
     Dosage: IN THE MORNINGS
     Route: 048

REACTIONS (1)
  - Cerebrovascular accident [Recovering/Resolving]

NARRATIVE: CASE EVENT DATE: 201703
